FAERS Safety Report 17667708 (Version 1)
Quarter: 2020Q2

REPORT INFORMATION
  Report Type: Report from Study
  Country: DE (occurrence: DE)
  Receive Date: 20200414
  Receipt Date: 20200414
  Transmission Date: 20200713
  Serious: Yes (Hospitalization, Other)
  Sender: FDA-Public Use
  Company Number: DE-BAUSCH-BL-2018-018546

PATIENT
  Age: 57 Year
  Sex: Male
  Weight: 68 kg

DRUGS (18)
  1. INNOHEP [Concomitant]
     Active Substance: TINZAPARIN SODIUM
     Indication: CARDIAC FAILURE
     Dosage: 1 UNKNOWN
     Route: 058
     Dates: start: 201805, end: 2018
  2. HYDROMORPHON RATIOPHARM [Concomitant]
     Indication: PAIN
     Dosage: 2.31 MG, AS NECESSARY
     Dates: start: 20180601
  3. ZOMETA [Concomitant]
     Active Substance: ZOLEDRONIC ACID
     Indication: PROPHYLAXIS
     Dates: start: 20161006, end: 20190619
  4. IG VENA [Concomitant]
     Active Substance: HUMAN IMMUNOGLOBULIN G
     Indication: PROPHYLAXIS
     Dates: start: 20180625
  5. HYDROMORPHONHYDROCHLORID BETA [Concomitant]
     Indication: PAIN
     Dates: start: 2016
  6. TINZAPARIN SODIUM [Concomitant]
     Active Substance: TINZAPARIN SODIUM
     Indication: PRODUCT USED FOR UNKNOWN INDICATION
  7. UNACID [Concomitant]
     Indication: PROPHYLAXIS
  8. PREGABALIN. [Concomitant]
     Active Substance: PREGABALIN
     Indication: PAIN
  9. KYPROLIS [Suspect]
     Active Substance: CARFILZOMIB
     Indication: PLASMA CELL MYELOMA
     Route: 042
     Dates: start: 20180516, end: 20180517
  10. KALINOR [Concomitant]
     Indication: PRODUCT USED FOR UNKNOWN INDICATION
     Dosage: UNKNOWN, THREE TIMES A DAY AND THEN DAILY
     Dates: start: 201805, end: 20180608
  11. UNACID [Concomitant]
     Indication: CARDIAC FAILURE
     Dosage: 1 UNKNOWN, UNKNOWN
     Route: 042
     Dates: start: 20180525, end: 2018
  12. KYPROLIS [Suspect]
     Active Substance: CARFILZOMIB
     Route: 042
     Dates: start: 20180516, end: 20180517
  13. RAMIPRIL BETA COMP [Concomitant]
     Indication: HYPERTONIA
     Dates: end: 201805
  14. PANTOPRAZOL BETA [Concomitant]
     Indication: PROPHYLAXIS
  15. ACC [Concomitant]
     Active Substance: ACETYLCYSTEINE
     Indication: PROPHYLAXIS
     Dosage: 1, UNKNOWN, UNKNOWN
     Dates: start: 20180525, end: 2018
  16. DEXAMETHASONE. [Suspect]
     Active Substance: DEXAMETHASONE
     Indication: PLASMA CELL MYELOMA
     Route: 065
     Dates: start: 20180516
  17. KYPROLIS [Suspect]
     Active Substance: CARFILZOMIB
     Route: 042
     Dates: start: 20180524, end: 20180627
  18. INNOHEP [Concomitant]
     Active Substance: TINZAPARIN SODIUM
     Indication: PROPHYLAXIS
     Route: 065

REACTIONS (5)
  - Dyspnoea [Recovered/Resolved]
  - Oedema peripheral [Recovered/Resolved]
  - Cardiac failure [Recovered/Resolved]
  - Anaemia [Recovered/Resolved]
  - Tachycardia [Recovered/Resolved]

NARRATIVE: CASE EVENT DATE: 20180525
